FAERS Safety Report 5600795-5 (Version None)
Quarter: 2008Q1

REPORT INFORMATION
  Report Type: 
  Country: None (occurrence: None)
  Receive Date: 20080123
  Receipt Date: 20080111
  Transmission Date: 20080703
  Serious: Yes (Disabling)
  Sender: FDA-Public Use
  Company Number: US-PFIZER INC-2008004225

PATIENT
  Sex: Female
  Weight: 78.9 kg

DRUGS (8)
  1. ZYVOX [Suspect]
     Indication: LOCALISED INFECTION
  2. ZYVOX [Suspect]
  3. ZYVOX [Suspect]
  4. LYRICA [Suspect]
     Indication: NEUROPATHY PERIPHERAL
     Route: 048
  5. WELLBUTRIN [Concomitant]
  6. XANAX [Concomitant]
  7. LORTAB [Concomitant]
  8. SOMA [Concomitant]
     Indication: FIBROMYALGIA

REACTIONS (5)
  - HEADACHE [None]
  - HOT FLUSH [None]
  - HYPOAESTHESIA [None]
  - PARAESTHESIA [None]
  - SLEEP DISORDER [None]
